FAERS Safety Report 9932371 (Version 1)
Quarter: 2014Q1

REPORT INFORMATION
  Report Type: Spontaneous
  Country: US (occurrence: US)
  Receive Date: 20140228
  Receipt Date: 20140228
  Transmission Date: 20141002
  Serious: No
  Sender: FDA-Public Use
  Company Number: US-GLAXOSMITHKLINE-A1009637A

PATIENT
  Sex: Female

DRUGS (13)
  1. LAMICTAL [Suspect]
     Indication: EPILEPSY
     Dosage: 900MG PER DAY
     Route: 048
     Dates: start: 201001
  2. DILANTIN [Concomitant]
  3. SPIRIVA [Concomitant]
  4. VENTOLIN [Concomitant]
  5. ADVAIR [Concomitant]
  6. RANITIDINE [Concomitant]
  7. PROZAC [Concomitant]
  8. DOXEPIN [Concomitant]
  9. LORATADINE [Concomitant]
  10. PRENATAL VITAMINS [Concomitant]
  11. VITAMIN C [Concomitant]
  12. VITAMIN B 12 [Concomitant]
  13. CALCIUM [Concomitant]

REACTIONS (2)
  - Somnolence [Not Recovered/Not Resolved]
  - Nausea [Unknown]
